FAERS Safety Report 11936946 (Version 1)
Quarter: 2016Q1

REPORT INFORMATION
  Report Type: Spontaneous
  Country: US (occurrence: US)
  Receive Date: 20160121
  Receipt Date: 20160121
  Transmission Date: 20160526
  Serious: Yes (Other)
  Sender: FDA-Public Use
  Company Number: US-MALLINCKRODT-T201600093

PATIENT
  Age: 86 Year
  Sex: Female
  Weight: 42 kg

DRUGS (4)
  1. FENTANYL TRANSDERMAL SYSTEM [Suspect]
     Active Substance: FENTANYL
     Indication: FRACTURE
     Dosage: 25 MCG/HR, ONCE EVERY 72 HOURS
     Route: 062
     Dates: start: 20151221, end: 201601
  2. FENTANYL TRANSDERMAL SYSTEM [Suspect]
     Active Substance: FENTANYL
     Dosage: 12.5 MCG/HR, ONCE EVERY 72 HOURS
     Route: 062
     Dates: start: 20160105
  3. TYLENOL [Suspect]
     Active Substance: ACETAMINOPHEN
     Dosage: UNK
     Route: 065
     Dates: start: 20150110
  4. TYLENOL [Suspect]
     Active Substance: ACETAMINOPHEN
     Indication: PRODUCT USED FOR UNKNOWN INDICATION
     Dosage: UNK
     Route: 065
     Dates: end: 20160108

REACTIONS (10)
  - Abdominal discomfort [Unknown]
  - Fractured coccyx [Unknown]
  - Feeling abnormal [Recovering/Resolving]
  - Laceration [Recovering/Resolving]
  - Fall [Recovered/Resolved]
  - Depressed mood [Recovering/Resolving]
  - Diarrhoea [Not Recovered/Not Resolved]
  - Pain [Not Recovered/Not Resolved]
  - Irritability [Recovering/Resolving]
  - Drug effect decreased [Not Recovered/Not Resolved]

NARRATIVE: CASE EVENT DATE: 201512
